FAERS Safety Report 8307758-X (Version None)
Quarter: 2012Q2

REPORT INFORMATION
  Report Type: 
  Country: None (occurrence: None)
  Receive Date: 20120424
  Receipt Date: 20120411
  Transmission Date: 20120825
  Serious: No
  Sender: FDA-Public Use
  Company Number: US-ROXANE LABORATORIES, INC.-2012-RO-01048RO

PATIENT
  Sex: Female

DRUGS (2)
  1. EXEMESTANE [Suspect]
     Dosage: 25 MG
     Route: 048
     Dates: start: 20120401, end: 20120401
  2. EXEMESTANE [Suspect]
     Indication: PROPHYLAXIS
     Dosage: 25 MG
     Route: 048
     Dates: start: 20111001, end: 20120301

REACTIONS (1)
  - DIARRHOEA [None]
